FAERS Safety Report 17521386 (Version 5)
Quarter: 2020Q2

REPORT INFORMATION
  Report Type: Report from Study
  Country: US (occurrence: US)
  Receive Date: 20200310
  Receipt Date: 20200519
  Transmission Date: 20200713
  Serious: Yes (Hospitalization)
  Sender: FDA-Public Use
  Company Number: US-EISAI MEDICAL RESEARCH-EC-2020-071323

PATIENT
  Age: 55 Year
  Sex: Female

DRUGS (3)
  1. LENVIMA [Suspect]
     Active Substance: LENVATINIB
     Indication: UTERINE CANCER
     Route: 048
     Dates: start: 20200214, end: 20200225
  2. LENVIMA [Suspect]
     Active Substance: LENVATINIB
     Route: 048
     Dates: start: 20200229, end: 202005
  3. TRAMADOL. [Suspect]
     Active Substance: TRAMADOL
     Indication: HEADACHE
     Dosage: UNKNOWN DOSE AND FREQUENCY

REACTIONS (18)
  - Asthenia [Not Recovered/Not Resolved]
  - Pyrexia [Recovering/Resolving]
  - Infection [Not Recovered/Not Resolved]
  - Vomiting [Recovering/Resolving]
  - Dysgeusia [Recovering/Resolving]
  - Fatigue [Recovering/Resolving]
  - Nausea [Recovering/Resolving]
  - Chest pain [Unknown]
  - Weight decreased [Recovering/Resolving]
  - Hypertension [Not Recovered/Not Resolved]
  - Constipation [Not Recovered/Not Resolved]
  - Oropharyngeal pain [Recovering/Resolving]
  - Chest discomfort [Unknown]
  - Decreased appetite [Recovering/Resolving]
  - Taste disorder [Recovering/Resolving]
  - Headache [Recovering/Resolving]
  - Nasal congestion [Unknown]
  - Drug ineffective [Not Recovered/Not Resolved]

NARRATIVE: CASE EVENT DATE: 2020
